FAERS Safety Report 8438260-2 (Version None)
Quarter: 2012Q2

REPORT INFORMATION
  Report Type: 
  Country: None (occurrence: None)
  Receive Date: 20120614
  Receipt Date: 20120612
  Transmission Date: 20120825
  Serious: Yes (Hospitalization)
  Sender: FDA-Public Use
  Company Number: PHHY2012GB041368

PATIENT
  Age: 36 Year
  Sex: Female

DRUGS (7)
  1. PALIPERIDONE [Suspect]
     Indication: PSYCHOTIC DISORDER
     Dosage: 150 MG, UNK
     Route: 030
     Dates: start: 20120329
  2. PROMETHAZINE [Concomitant]
  3. DIAZEPAM [Concomitant]
  4. CITALOPRAM [Suspect]
     Dosage: 40 MG, UNK
  5. PALIPERIDONE [Suspect]
     Dosage: 100 MG, UNK
     Route: 030
  6. CITALOPRAM [Suspect]
     Dosage: 20 MG, UNK
     Dates: start: 20120419
  7. LORAZEPAM [Concomitant]

REACTIONS (7)
  - PSYCHOTIC DISORDER [None]
  - MUSCULOSKELETAL STIFFNESS [None]
  - CATATONIA [None]
  - EXTRAPYRAMIDAL DISORDER [None]
  - AKATHISIA [None]
  - ANTIPSYCHOTIC DRUG LEVEL INCREASED [None]
  - AGITATION [None]
